FAERS Safety Report 21436543 (Version 3)
Quarter: 2022Q4

REPORT INFORMATION
  Report Type: Spontaneous
  Country: US (occurrence: None)
  Receive Date: 20221010
  Receipt Date: 20221124
  Transmission Date: 20230112
  Serious: No
  Sender: FDA-Public Use
  Company Number: 2022A333665

PATIENT
  Age: 892 Month
  Sex: Female
  Weight: 55.3 kg

DRUGS (1)
  1. SYMBICORT [Suspect]
     Active Substance: BUDESONIDE\FORMOTEROL FUMARATE DIHYDRATE
     Indication: Asthma
     Dosage: 160/ 4.5 MCG, 2 INHALATIONS 2 TIMES A DAY
     Route: 055
     Dates: start: 2008

REACTIONS (3)
  - Cough [Recovered/Resolved]
  - Muscle spasms [Unknown]
  - Device use issue [Unknown]

NARRATIVE: CASE EVENT DATE: 20220901
